FAERS Safety Report 4553471-4 (Version None)
Quarter: 2005Q1

REPORT INFORMATION
  Report Type: 
  Country: None (occurrence: None)
  Receive Date: 20050112
  Receipt Date: 20041222
  Transmission Date: 20050727
  Serious: Yes (Hospitalization)
  Sender: FDA-Public Use
  Company Number: GBS041216267

PATIENT
  Age: 23 Year
  Sex: Female
  Weight: 66 kg

DRUGS (2)
  1. FLUOXETINE [Suspect]
     Dosage: 20 MG DAY
  2. ROCALTROL [Concomitant]

REACTIONS (2)
  - ABORTION SPONTANEOUS [None]
  - ECTOPIC PREGNANCY [None]
